FAERS Safety Report 13875307 (Version 2)
Quarter: 2017Q4

REPORT INFORMATION
  Report Type: Report from Study
  Country: None (occurrence: US)
  Receive Date: 20170817
  Receipt Date: 20171013
  Transmission Date: 20180320
  Serious: Yes (Hospitalization)
  Sender: FDA-Public Use
  Company Number: US-ABBVIE-17K-163-2069072-00

PATIENT
  Age: 33 Year
  Sex: Female
  Weight: 79.9 kg

DRUGS (1)
  1. HUMIRA [Suspect]
     Active Substance: ADALIMUMAB
     Indication: UVEITIS
     Route: 058
     Dates: end: 201707

REACTIONS (10)
  - Pruritus allergic [Recovered/Resolved]
  - Erythema [Recovered/Resolved]
  - Allergic oedema [Recovered/Resolved]
  - Erythema [Unknown]
  - Abdominal discomfort [Unknown]
  - Drug hypersensitivity [Recovered/Resolved]
  - Pruritus allergic [Unknown]
  - Drug hypersensitivity [Unknown]
  - Allergic oedema [Unknown]
  - Abdominal discomfort [Unknown]

NARRATIVE: CASE EVENT DATE: 201707
